FAERS Safety Report 15531705 (Version 1)
Quarter: 2018Q4

REPORT INFORMATION
  Report Type: Spontaneous
  Country: NL (occurrence: NL)
  Receive Date: 20181019
  Receipt Date: 20181019
  Transmission Date: 20190205
  Serious: Yes (Hospitalization)
  Sender: FDA-Public Use
  Company Number: NL-ACCORD-073492

PATIENT

DRUGS (4)
  1. FLUOROURACIL. [Suspect]
     Active Substance: FLUOROURACIL
     Indication: COLORECTAL CANCER
     Dosage: LAST DOSE PRIOR TO AE: 16/NOV/2016
     Route: 040
     Dates: start: 20161006, end: 20161116
  2. FOLINIC ACID [Suspect]
     Active Substance: LEUCOVORIN
     Indication: COLORECTAL CANCER
     Dosage: 400 MG/M2, Q2W (DATE OF LAST DOSE PRIOR TO AE 16 NOV 2016)
     Route: 042
     Dates: start: 20161006, end: 20161116
  3. OXALIPLATIN. [Suspect]
     Active Substance: OXALIPLATIN
     Indication: COLORECTAL CANCER
     Dosage: 85 MG/M2, Q2W (DATE OF LAST DOSE PRIOR TO AE: 16 NOV 2016)
     Route: 042
     Dates: start: 20161006, end: 20161116
  4. AVASTIN [Suspect]
     Active Substance: BEVACIZUMAB
     Indication: COLORECTAL CANCER
     Dosage: LAST DOSE PRIOR TO AE: 16-NOV-2016
     Route: 042
     Dates: start: 20161006, end: 20161116

REACTIONS (1)
  - Embolism [Recovering/Resolving]

NARRATIVE: CASE EVENT DATE: 20161122
